FAERS Safety Report 20370354 (Version 3)
Quarter: 2022Q1

REPORT INFORMATION
  Report Type: Spontaneous
  Country: IT (occurrence: None)
  Receive Date: 20220124
  Receipt Date: 20220302
  Transmission Date: 20220424
  Serious: Yes (Death, Hospitalization, Other)
  Sender: FDA-Public Use
  Company Number: IT-009507513-2112ITA005855

PATIENT
  Age: 77 Year
  Sex: Female
  Weight: 50 kg

DRUGS (52)
  1. ACETAMINOPHEN [Suspect]
     Active Substance: ACETAMINOPHEN
     Indication: Contusion
     Dosage: 1 G, QD
     Route: 042
     Dates: start: 20211025, end: 20211025
  2. POSACONAZOLE [Suspect]
     Active Substance: POSACONAZOLE
     Indication: Prophylaxis
     Dosage: 300 MG, QD
     Route: 048
     Dates: start: 20210922, end: 20211114
  3. SIMVASTATIN [Suspect]
     Active Substance: SIMVASTATIN
     Indication: Dyslipidaemia
     Dosage: 20 MG QD
     Route: 048
     Dates: start: 20150101, end: 20211116
  4. ACETAMINOPHEN [Suspect]
     Active Substance: ACETAMINOPHEN
     Indication: Haemorrhoids
     Dosage: 500 MG, QD
     Route: 048
     Dates: start: 20211020, end: 20211020
  5. ACETAMINOPHEN [Suspect]
     Active Substance: ACETAMINOPHEN
     Indication: Contusion
     Dosage: 1 G, QD
     Route: 048
     Dates: start: 20211021, end: 20211114
  6. ACETAMINOPHEN [Suspect]
     Active Substance: ACETAMINOPHEN
     Dosage: UNK
     Route: 065
     Dates: start: 20211115, end: 20211115
  7. POSACONAZOLE [Suspect]
     Active Substance: POSACONAZOLE
     Indication: Antifungal prophylaxis
     Dosage: 300 MILLIGRAM, QD
     Route: 048
     Dates: start: 20210922, end: 20211114
  8. LEVOFLOXACIN [Suspect]
     Active Substance: LEVOFLOXACIN
     Indication: Product used for unknown indication
     Dosage: 500 MILLIGRAM, QD
     Route: 048
     Dates: end: 20211114
  9. IMETELSTAT [Suspect]
     Active Substance: IMETELSTAT
     Indication: Product used for unknown indication
     Dosage: UNK
     Route: 065
  10. HYDROXYUREA [Concomitant]
     Active Substance: HYDROXYUREA
     Indication: Acute myeloid leukaemia
     Dosage: 500 MG, 2 IN 1 D
     Route: 048
     Dates: start: 20210906, end: 20211017
  11. HYDROXYUREA [Concomitant]
     Active Substance: HYDROXYUREA
     Dosage: 500 MG, 2 IN 1 D
     Route: 048
     Dates: start: 20210906, end: 20211017
  12. FLUOCINOLONE ACETONIDE/KETOCAINE HYDROCHLORIDE [Concomitant]
     Indication: Haemorrhoids
     Dosage: 0.1+10 MG (3 IN 1 D)
     Route: 061
     Dates: start: 20211021, end: 20211028
  13. MEROPENEM [Concomitant]
     Active Substance: MEROPENEM
     Indication: Pneumonia
     Dosage: 1000 MG,3 IN 1 D
     Route: 042
     Dates: start: 20210916, end: 20210921
  14. MEROPENEM [Concomitant]
     Active Substance: MEROPENEM
     Dosage: 1000 MG, 3 IN 1 D
     Route: 042
     Dates: start: 20210916, end: 20210921
  15. PLATELETS [Concomitant]
     Active Substance: HUMAN PLATELET, ALLOGENIC
     Indication: Thrombocytopenia
     Dosage: UNK?HUMAN PLATELET, ALLOGENIC
     Route: 042
     Dates: start: 20211108, end: 20211108
  16. PLATELETS [Concomitant]
     Active Substance: HUMAN PLATELET, ALLOGENIC
     Dosage: UNK?HUMAN PLATELET, ALLOGENIC
     Route: 042
     Dates: start: 20211019, end: 20211019
  17. PLATELETS [Concomitant]
     Active Substance: HUMAN PLATELET, ALLOGENIC
     Dosage: UNK?HUMAN PLATELET, ALLOGENIC
     Route: 042
     Dates: start: 20211102, end: 20211102
  18. SODIUM CHLORIDE [Concomitant]
     Active Substance: SODIUM CHLORIDE
     Indication: Hyponatraemia
     Dosage: 0.9 PERCENT, QD
     Route: 042
     Dates: start: 20211024, end: 20211024
  19. SODIUM CHLORIDE [Concomitant]
     Active Substance: SODIUM CHLORIDE
     Dosage: 2340 MILLIGRAM, 1 IN 1
     Route: 042
     Dates: start: 20211022, end: 20211022
  20. SODIUM CHLORIDE [Concomitant]
     Active Substance: SODIUM CHLORIDE
     Dosage: 2340 MILLIGRAM, 1 IN 1
     Route: 042
     Dates: start: 20211025, end: 20211025
  21. SODIUM CHLORIDE [Concomitant]
     Active Substance: SODIUM CHLORIDE
     Dosage: 2340 MILLIGRAM, 1 IN 1
     Route: 042
     Dates: start: 20211021, end: 20211021
  22. SODIUM CHLORIDE [Concomitant]
     Active Substance: SODIUM CHLORIDE
     Dosage: UNK
     Route: 042
     Dates: start: 20211112, end: 20211112
  23. SODIUM CHLORIDE [Concomitant]
     Active Substance: SODIUM CHLORIDE
     Dosage: 2340 MILLIGRAM, 1 IN 1
     Route: 042
     Dates: start: 20211026, end: 20211026
  24. SODIUM CHLORIDE [Concomitant]
     Active Substance: SODIUM CHLORIDE
     Dosage: 60 MEQ?60 MEQ, DAILY
     Route: 065
  25. SODIUM CHLORIDE [Concomitant]
     Active Substance: SODIUM CHLORIDE
     Dosage: UNK
     Route: 042
     Dates: start: 20211116, end: 20211119
  26. SODIUM [Concomitant]
     Active Substance: SODIUM
     Indication: Hyponatraemia
     Dosage: 0.9 PERCENT, 1 IN 1 AS REQUIRED
     Route: 042
     Dates: start: 20211018, end: 20211019
  27. SODIUM [Concomitant]
     Active Substance: SODIUM
     Dosage: 0.9 PERCENT, 1 IN 1 AS REQUIRED
     Route: 042
     Dates: start: 20211018, end: 20211019
  28. AMILORIDE HYDROCHLORIDE\HYDROCHLOROTHIAZIDE [Concomitant]
     Active Substance: AMILORIDE HYDROCHLORIDE\HYDROCHLOROTHIAZIDE
     Indication: Hypertension
     Dosage: 5+50 MG (5 MG,1 IN 1 D)
     Route: 048
     Dates: start: 20150101
  29. AMILORIDE HYDROCHLORIDE\HYDROCHLOROTHIAZIDE [Concomitant]
     Active Substance: AMILORIDE HYDROCHLORIDE\HYDROCHLOROTHIAZIDE
     Dosage: 5+50 MG (5 MG,1 IN 1 D)
     Route: 048
     Dates: start: 20150101
  30. ACYCLOVIR [Concomitant]
     Active Substance: ACYCLOVIR
     Indication: Prophylaxis
     Dosage: 800 MILLIGRAM, 1 IN 1 D
     Route: 048
     Dates: start: 20190101, end: 20211114
  31. HUMAN RED BLOOD CELL [Concomitant]
     Active Substance: HUMAN RED BLOOD CELL
     Indication: Product used for unknown indication
     Dosage: UNK
     Route: 042
     Dates: start: 20211010, end: 20211010
  32. HUMAN RED BLOOD CELL [Concomitant]
     Active Substance: HUMAN RED BLOOD CELL
     Dosage: UNK
     Route: 042
     Dates: start: 20211025, end: 20211025
  33. HUMAN RED BLOOD CELL [Concomitant]
     Active Substance: HUMAN RED BLOOD CELL
     Dosage: UNK
     Route: 042
     Dates: start: 20211020, end: 20211020
  34. COVID-19 VACCINE [Concomitant]
     Indication: COVID-19 immunisation
     Dosage: UNK, QD
     Route: 030
     Dates: start: 20210314, end: 20210314
  35. COVID-19 VACCINE [Concomitant]
     Dosage: UNK
     Route: 030
     Dates: start: 20210414, end: 20210414
  36. MESALAMINE [Concomitant]
     Active Substance: MESALAMINE
     Indication: Haemorrhoids
     Dosage: 1 SUPPOST
     Route: 054
     Dates: start: 20211029
  37. MESALAMINE [Concomitant]
     Active Substance: MESALAMINE
     Route: 065
  38. OMEPRAZOLE [Concomitant]
     Active Substance: OMEPRAZOLE
     Indication: Prophylaxis
     Dosage: 20 GRAM, 1 IN 1 D
     Route: 048
     Dates: start: 20190101
  39. POLYETHYLENE GLYCOL 3350\POTASSIUM CHLORIDE\SODIUM BICARBONATE\SODIUM [Concomitant]
     Active Substance: POLYETHYLENE GLYCOL 3350\POTASSIUM CHLORIDE\SODIUM BICARBONATE\SODIUM CHLORIDE
     Indication: Constipation
     Dosage: 41.4 GRAM, QD, (13.8 GM, 3 IN 1 D)
     Route: 048
     Dates: start: 20211021
  40. TRAMADOL [Concomitant]
     Active Substance: TRAMADOL
     Indication: Haemorrhoids
     Dosage: 100 MILLIGRAM, 1 IN 1
     Route: 042
     Dates: start: 20211026, end: 20211026
  41. TRAMADOL [Concomitant]
     Active Substance: TRAMADOL
     Route: 065
  42. BENZOYL PEROXIDE [Concomitant]
     Active Substance: BENZOYL PEROXIDE
     Indication: Haemorrhoids
     Dosage: UNK
     Route: 048
     Dates: start: 20211029
  43. BENZOYL PEROXIDE [Concomitant]
     Active Substance: BENZOYL PEROXIDE
     Route: 065
  44. SALICYLIC ACID/ZINC OXIDE [Concomitant]
     Indication: Haemorrhoids
     Dosage: UNK
     Route: 061
     Dates: start: 20211029
  45. SALICYLIC ACID/ZINC OXIDE [Concomitant]
     Route: 065
  46. SENNA [Concomitant]
     Active Substance: SENNA LEAF\SENNOSIDES\SENNOSIDES A AND B
     Indication: Constipation
     Dosage: 2 TABLETS, ONCE
     Route: 048
     Dates: start: 20211119, end: 20211119
  47. PIPERACILLIN SODIUM\TAZOBACTAM SODIUM [Concomitant]
     Active Substance: PIPERACILLIN SODIUM\TAZOBACTAM SODIUM
     Indication: Product used for unknown indication
     Dosage: 4 G/ 0.5 G, ONCE
     Route: 042
     Dates: start: 20211120, end: 20211120
  48. PIPERACILLIN SODIUM\TAZOBACTAM SODIUM [Concomitant]
     Active Substance: PIPERACILLIN SODIUM\TAZOBACTAM SODIUM
     Dosage: 4 G/ 0.5 G, TID
     Route: 042
     Dates: start: 20211117, end: 20211119
  49. OXYGEN [Concomitant]
     Active Substance: OXYGEN
     Indication: Product used for unknown indication
     Dosage: 3 LITRES PER MINUTE AS NEEDED
     Route: 065
     Dates: start: 20211118, end: 20211119
  50. OXYGEN [Concomitant]
     Active Substance: OXYGEN
     Dosage: 4 LITRES PER MINUTE AS NEEDED
     Route: 065
     Dates: start: 20211120
  51. OXYGEN [Concomitant]
     Active Substance: OXYGEN
     Dosage: 1 TO 2 LITRES PER MINUTE AS NEEDED
     Route: 065
     Dates: start: 20211117, end: 20211117
  52. POTASSIUM CHLORIDE [Concomitant]
     Active Substance: POTASSIUM CHLORIDE
     Indication: Product used for unknown indication
     Dosage: 20 MEQ?20 MEQ, QD
     Route: 042
     Dates: start: 20211118, end: 20211119

REACTIONS (21)
  - Pneumonia [Fatal]
  - Vomiting [Fatal]
  - Hyponatraemia [Fatal]
  - Asthenia [Fatal]
  - Constipation [Fatal]
  - Anaemia [Fatal]
  - Diarrhoea [Fatal]
  - Hypokalaemia [Fatal]
  - Acute myeloid leukaemia [Fatal]
  - Nausea [Fatal]
  - Pain [Fatal]
  - Infection [Fatal]
  - Blood lactate dehydrogenase increased [Fatal]
  - Renal disorder [Fatal]
  - Thrombocytopenia [Fatal]
  - Tachycardia [Fatal]
  - Neutropenia [Fatal]
  - Blood bilirubin increased [Fatal]
  - Aspartate aminotransferase increased [Fatal]
  - Blood alkaline phosphatase increased [Fatal]
  - Drug-induced liver injury [Fatal]

NARRATIVE: CASE EVENT DATE: 20210811
